FAERS Safety Report 8770738 (Version 1)
Quarter: 2012Q4

REPORT INFORMATION
  Report Type: 
  Country: CN (occurrence: CN)
  Receive Date: 20120906
  Receipt Date: 20120906
  Transmission Date: 20130627
  Serious: Yes (Hospitalization)
  Sender: FDA-Public Use
  Company Number: CN-PFIZER INC-2012217800

PATIENT
  Sex: Male

DRUGS (2)
  1. RAPAMUNE [Suspect]
     Indication: RENAL TRANSPLANT
     Dosage: 2 mg, daily
     Route: 048
     Dates: start: 2000
  2. RAPAMUNE [Suspect]
     Dosage: 1 mg, daily
     Route: 048

REACTIONS (2)
  - Mouth ulceration [Recovered/Resolved]
  - Arthralgia [Unknown]
